FAERS Safety Report 10139026 (Version 2)
Quarter: 2015Q1

REPORT INFORMATION
  Report Type: Other
  Country: US (occurrence: US)
  Receive Date: 20140429
  Receipt Date: 20150211
  Transmission Date: 20150720
  Serious: Yes (Hospitalization, Other)
  Sender: FDA-Public Use
  Company Number: US-GSKPPD-2014GSK040358

PATIENT
  Age: 66 Year
  Sex: Female

DRUGS (8)
  1. PROCARDIA [Concomitant]
     Active Substance: NIFEDIPINE
  2. AVANDARYL [Suspect]
     Active Substance: GLIMEPIRIDE\ROSIGLITAZONE MALEATE
     Indication: DIABETES MELLITUS
     Dosage: DATES OF AVANDARYL USE COULD NOT BE CONFIRMED IN RECORDS REVIEWED.
  3. CLONIDINE. [Concomitant]
     Active Substance: CLONIDINE
  4. ATENOLOL. [Concomitant]
     Active Substance: ATENOLOL
  5. COREG [Concomitant]
     Active Substance: CARVEDILOL
  6. IMDUR [Concomitant]
     Active Substance: ISOSORBIDE MONONITRATE
  7. AMIODARONE [Concomitant]
     Active Substance: AMIODARONE
  8. AVANDIA [Suspect]
     Active Substance: ROSIGLITAZONE MALEATE
     Indication: DIABETES MELLITUS
     Dosage: AVANDIA WAS NOT LISTED AMONG THE PATIENTS RECORDS REVIEWED.
     Route: 048

REACTIONS (3)
  - Cardiac failure congestive [Recovered/Resolved]
  - Cerebral infarction [Recovered/Resolved]
  - Myocardial infarction [Unknown]

NARRATIVE: CASE EVENT DATE: 20010410
